APPROVED DRUG PRODUCT: GLYRX-PF
Active Ingredient: GLYCOPYRROLATE
Strength: 1MG/5ML (0.2MG/ML)
Dosage Form/Route: SOLUTION;INTRAMUSCULAR, INTRAVENOUS
Application: N210997 | Product #003
Applicant: EXELA PHARMA SCIENCES LLC
Approved: Apr 9, 2020 | RLD: Yes | RS: Yes | Type: RX